FAERS Safety Report 5973124-5 (Version None)
Quarter: 2008Q4

REPORT INFORMATION
  Report Type: 
  Country: None (occurrence: None)
  Receive Date: 20081126
  Receipt Date: 20081126
  Transmission Date: 20090506
  Serious: Yes (Hospitalization)
  Sender: FDA-Public Use
  Company Number: None

PATIENT
  Age: 49 Year
  Sex: Female
  Weight: 54.4316 kg

DRUGS (3)
  1. DOCETAXEL [Suspect]
     Indication: CHEMOTHERAPY
     Dosage: 75 MG/M SQUARED 3 CYCLES IV
     Route: 042
     Dates: start: 20081008, end: 20081030
  2. CISPLATIN [Suspect]
     Indication: CHEMOTHERAPY
     Dosage: 75 MG/M SQUARED 3 CYCLES IV
     Route: 042
     Dates: start: 20081008, end: 20081030
  3. FLUOROURACIL CHEMOTHERAPY [Concomitant]

REACTIONS (8)
  - ABDOMINAL PAIN [None]
  - ABDOMINAL PAIN UPPER [None]
  - BLOOD COUNT ABNORMAL [None]
  - CONSTIPATION [None]
  - ELECTROLYTE IMBALANCE [None]
  - LEUKOPENIA [None]
  - PYREXIA [None]
  - URINARY RETENTION [None]
